FAERS Safety Report 4777332-0 (Version None)
Quarter: 2005Q3

REPORT INFORMATION
  Report Type: 
  Country: None (occurrence: None)
  Receive Date: 20050922
  Receipt Date: 20050922
  Transmission Date: 20060218
  Serious: Yes (Hospitalization)
  Sender: FDA-Public Use
  Company Number: None

PATIENT
  Sex: Male

DRUGS (20)
  1. SPIRONOLACTONE [Suspect]
     Indication: CARDIAC FAILURE CONGESTIVE
     Dosage: 100 MG   BID  PO
     Route: 048
     Dates: start: 20050603, end: 20050623
  2. SPIRONOLACTONE [Suspect]
     Indication: CARDIAC FAILURE CONGESTIVE
     Dosage: 100 MG   DAILY   PO
     Route: 048
     Dates: start: 20050624, end: 20050629
  3. LISINOPRIL [Concomitant]
  4. METOPROLOL [Concomitant]
  5. CLONIDINE [Concomitant]
  6. ASPIRIN [Concomitant]
  7. SIMVASTATIN [Concomitant]
  8. BUPROPION SA [Concomitant]
  9. TERAZOSIN HCL [Concomitant]
  10. ZOLPIDEM [Concomitant]
  11. FLUOXETINE [Concomitant]
  12. APAP TAB [Concomitant]
  13. ALBUTEROL [Concomitant]
  14. ALUMINUM HYDROXIDE AND MAGNESIUM TRISILICATE [Concomitant]
  15. AMLODIPINE [Concomitant]
  16. COMBIVENT [Concomitant]
  17. INSULIN [Concomitant]
  18. SALSALATE [Concomitant]
  19. WARFARIN SODIUM [Concomitant]
  20. BUMETANIDE [Concomitant]

REACTIONS (3)
  - HYPERKALAEMIA [None]
  - HYPOVOLAEMIA [None]
  - RENAL FAILURE ACUTE [None]
